FAERS Safety Report 15525560 (Version 1)
Quarter: 2018Q4

REPORT INFORMATION
  Report Type: Spontaneous
  Country: IT (occurrence: IT)
  Receive Date: 20181019
  Receipt Date: 20181019
  Transmission Date: 20190205
  Serious: Yes (Death, Other)
  Sender: FDA-Public Use
  Company Number: PHHY2018IT131507

PATIENT
  Age: 53 Year
  Sex: Male

DRUGS (8)
  1. VARGATEF [Suspect]
     Active Substance: NINTEDANIB
     Indication: PLEURAL MESOTHELIOMA MALIGNANT
     Dosage: 400 MG, QD
     Route: 048
  2. CARBOPLATIN. [Suspect]
     Active Substance: CARBOPLATIN
     Indication: PLEURAL MESOTHELIOMA MALIGNANT
     Dosage: UNK
     Route: 065
  3. VARGATEF [Suspect]
     Active Substance: NINTEDANIB
     Dosage: 400 MG, QD
     Route: 048
     Dates: start: 201505
  4. CISPLATIN. [Suspect]
     Active Substance: CISPLATIN
     Dosage: UNK
     Route: 042
  5. VINORELBINE [Suspect]
     Active Substance: VINORELBINE\VINORELBINE TARTRATE
     Indication: PLEURAL MESOTHELIOMA MALIGNANT
     Route: 065
  6. TRABECTEDIN [Suspect]
     Active Substance: TRABECTEDIN
     Indication: PLEURAL MESOTHELIOMA MALIGNANT
     Dosage: 1.1 MG/M2, (IV TRABECTEDIN INFUSION IN 5% GLUCOSE OVER 3 HOURS EVERY 21 DAYS)
     Route: 042
  7. CARBOPLATIN. [Suspect]
     Active Substance: CARBOPLATIN
     Dosage: UNK
     Route: 065
  8. CISPLATIN. [Suspect]
     Active Substance: CISPLATIN
     Indication: PRODUCT USED FOR UNKNOWN INDICATION
     Dosage: 500 MG/M2, UNK (500 MG/M2 OF PEMETREXED AND 75 MG/M2 OF CISPLATIN)
     Route: 042

REACTIONS (4)
  - Circumoral oedema [Unknown]
  - Off label use [Unknown]
  - Embolism venous [Unknown]
  - Malignant neoplasm progression [Fatal]

NARRATIVE: CASE EVENT DATE: 201412
